FAERS Safety Report 5422396-4 (Version None)
Quarter: 2007Q3

REPORT INFORMATION
  Report Type: 
  Country: None (occurrence: None)
  Receive Date: 20070822
  Receipt Date: 20070816
  Transmission Date: 20080115
  Serious: Yes (Other)
  Sender: FDA-Public Use
  Company Number: A0673135A

PATIENT
  Age: 38 Year
  Sex: Male

DRUGS (4)
  1. WELLBUTRIN [Suspect]
     Indication: DRUG USE FOR UNKNOWN INDICATION
  2. AMBIEN [Suspect]
     Indication: DRUG USE FOR UNKNOWN INDICATION
  3. ZYPREXA [Suspect]
     Indication: DRUG USE FOR UNKNOWN INDICATION
  4. PROZAC [Suspect]
     Indication: DRUG USE FOR UNKNOWN INDICATION

REACTIONS (7)
  - DYSARTHRIA [None]
  - DYSSTASIA [None]
  - LEGAL PROBLEM [None]
  - MIOSIS [None]
  - MUSCLE TWITCHING [None]
  - ROAD TRAFFIC ACCIDENT [None]
  - SPEECH DISORDER [None]
